FAERS Safety Report 9719772 (Version 1)
Quarter: 2013Q4

REPORT INFORMATION
  Report Type: Spontaneous
  Country: US (occurrence: US)
  Receive Date: 20131128
  Receipt Date: 20131128
  Transmission Date: 20140711
  Serious: Yes (Hospitalization)
  Sender: FDA-Public Use
  Company Number: US-SUN PHARMACEUTICAL INDUSTRIES LTD-2013SUN05064

PATIENT
  Age: 5 Year
  Sex: Female

DRUGS (1)
  1. BUPROPION HYDROCHLORIDE EXTENDED-RELEASE TABLETS, USP (SR) 100MG [Suspect]
     Indication: PRODUCT USED FOR UNKNOWN INDICATION
     Route: 065

REACTIONS (11)
  - Gait disturbance [None]
  - Overdose [Unknown]
  - Headache [Unknown]
  - Nausea [Unknown]
  - Vomiting [Unknown]
  - Leukocytosis [Unknown]
  - Convulsion [Unknown]
  - Tachycardia [Unknown]
  - Urinary incontinence [Unknown]
  - Agitation [Unknown]
  - Mydriasis [Unknown]
